FAERS Safety Report 5639571-6 (Version None)
Quarter: 2008Q1

REPORT INFORMATION
  Report Type: 
  Country: None (occurrence: None)
  Receive Date: 20080226
  Receipt Date: 20080214
  Transmission Date: 20080703
  Serious: Yes (Other)
  Sender: FDA-Public Use
  Company Number: US-PFIZER INC-2008016777

PATIENT
  Sex: Female
  Weight: 86.363 kg

DRUGS (9)
  1. CHANTIX [Suspect]
     Indication: SMOKING CESSATION THERAPY
     Route: 048
     Dates: start: 20080130, end: 20080205
  2. MORPHINE SULFATE [Concomitant]
  3. FENTANYL CITRATE [Concomitant]
  4. ACTIQ [Concomitant]
  5. CYMBALTA [Concomitant]
  6. NAPROXEN [Concomitant]
  7. FLEXERIL [Concomitant]
  8. AMBIEN [Concomitant]
  9. FOSINOPRIL SODIUM [Concomitant]

REACTIONS (6)
  - ACTIVITIES OF DAILY LIVING IMPAIRED [None]
  - CONFUSIONAL STATE [None]
  - FEAR [None]
  - HYPERHIDROSIS [None]
  - IMPAIRED DRIVING ABILITY [None]
  - MENTAL IMPAIRMENT [None]
